FAERS Safety Report 9624671 (Version 1)
Quarter: 2013Q4

REPORT INFORMATION
  Report Type: Spontaneous
  Country: NL (occurrence: NL)
  Receive Date: 20131015
  Receipt Date: 20131015
  Transmission Date: 20140711
  Serious: Yes (Hospitalization)
  Sender: FDA-Public Use
  Company Number: NL-TEVA-435836ISR

PATIENT
  Age: 66 Year
  Sex: Female

DRUGS (3)
  1. METFORMINE TABLET 1000MG [Suspect]
     Indication: TYPE 2 DIABETES MELLITUS
     Dosage: 3000 MILLIGRAM DAILY;
     Route: 048
     Dates: start: 2006, end: 20130908
  2. GLIMEPIRIDE TABLET 1MG [Concomitant]
     Dosage: 2 MILLIGRAM DAILY;
     Route: 048
     Dates: end: 20130908
  3. ENALAPRIL TABLET 20MG [Concomitant]
     Dosage: 40 MILLIGRAM DAILY;
     Route: 048

REACTIONS (4)
  - Lactic acidosis [Recovered/Resolved with Sequelae]
  - Renal failure [Recovered/Resolved with Sequelae]
  - Hepatic failure [Recovered/Resolved with Sequelae]
  - Vomiting [Recovered/Resolved with Sequelae]
